FAERS Safety Report 6932106-7 (Version None)
Quarter: 2010Q3

REPORT INFORMATION
  Report Type: 
  Country: None (occurrence: None)
  Receive Date: 20100819
  Receipt Date: 20100812
  Transmission Date: 20110219
  Serious: Yes (Other)
  Sender: FDA-Public Use
  Company Number: A0865520A

PATIENT
  Age: 65 Year
  Sex: Female

DRUGS (7)
  1. ADVAIR DISKUS 100/50 [Suspect]
     Indication: CHRONIC OBSTRUCTIVE PULMONARY DISEASE
     Dosage: 1PUFF TWICE PER DAY
     Route: 055
     Dates: start: 20030101
  2. SPIRIVA [Concomitant]
  3. PROAIR HFA [Concomitant]
  4. PREDNISONE [Concomitant]
  5. CARBIDOPA AND LEVODOPA [Concomitant]
  6. FLUTICASONE PROPIONATE [Concomitant]
  7. OXYGEN [Concomitant]

REACTIONS (4)
  - DRUG INEFFECTIVE [None]
  - DYSPNOEA [None]
  - PARALYSIS [None]
  - PRODUCT QUALITY ISSUE [None]
